APPROVED DRUG PRODUCT: NYSTATIN
Active Ingredient: NYSTATIN
Strength: 100,000 UNITS/GM
Dosage Form/Route: CREAM;TOPICAL
Application: A062225 | Product #001 | TE Code: AT
Applicant: PADAGIS US LLC
Approved: Approved Prior to Jan 1, 1982 | RLD: No | RS: No | Type: RX